FAERS Safety Report 19705839 (Version 1)
Quarter: 2021Q3

REPORT INFORMATION
  Report Type: Spontaneous
  Country: DE (occurrence: DE)
  Receive Date: 20210817
  Receipt Date: 20210817
  Transmission Date: 20211014
  Serious: Yes (Other)
  Sender: FDA-Public Use
  Company Number: DE-AUROBINDO-AUR-APL-2017-45348

PATIENT
  Age: 34 Year
  Sex: Female

DRUGS (2)
  1. METFORMIN [Suspect]
     Active Substance: METFORMIN HYDROCHLORIDE
     Indication: HYPERGLYCAEMIA
     Dosage: 1000 MG, TWO TIMES A DAY
     Route: 048
  2. LIRAGLUTIDE [Suspect]
     Active Substance: LIRAGLUTIDE
     Indication: HYPERGLYCAEMIA
     Dosage: 1.2 MG PER DAY
     Route: 065
     Dates: end: 2015

REACTIONS (1)
  - Drug ineffective [Unknown]
